FAERS Safety Report 7831772-1 (Version None)
Quarter: 2011Q4

REPORT INFORMATION
  Report Type: 
  Country: None (occurrence: None)
  Receive Date: 20111021
  Receipt Date: 20111017
  Transmission Date: 20120403
  Serious: Yes (Death, Hospitalization)
  Sender: FDA-Public Use
  Company Number: GXBR2011US04901

PATIENT
  Sex: Male
  Weight: 90 kg

DRUGS (7)
  1. CEFTRIAXONE [Suspect]
     Dosage: UNK MG, UNK
  2. ASPIRIN [Concomitant]
     Indication: ANTIPLATELET THERAPY
     Dosage: 325 MG, QD
     Route: 048
     Dates: start: 20110509
  3. PROPOFOL [Concomitant]
     Dosage: 100 ML, PRN
     Route: 042
     Dates: start: 20110508
  4. FOSPHENYTOIN [Concomitant]
     Dosage: 100 MG, Q8H
     Route: 042
     Dates: start: 20110509
  5. VANCOMIN [Concomitant]
     Dosage: 1 G, Q12H
     Route: 042
     Dates: start: 20110510, end: 20110512
  6. CAPTOPRIL [Concomitant]
     Dosage: 6.25 MG, Q12H
     Route: 048
     Dates: start: 20110511
  7. APAP TAB [Concomitant]
     Indication: PYREXIA
     Dosage: 650 MG, Q6H PRN
     Route: 048
     Dates: start: 20110509

REACTIONS (5)
  - DEATH [None]
  - PNEUMONIA [None]
  - CARDIAC ARREST [None]
  - ACUTE RESPIRATORY FAILURE [None]
  - SEPSIS [None]
